FAERS Safety Report 5528377-4 (Version None)
Quarter: 2007Q4

REPORT INFORMATION
  Report Type: 
  Country: None (occurrence: None)
  Receive Date: 20071121
  Receipt Date: 20071108
  Transmission Date: 20080405
  Serious: Yes (Hospitalization)
  Sender: FDA-Public Use
  Company Number: 2007JP004998

PATIENT
  Age: 55 Year
  Sex: Female
  Weight: 52.9 kg

DRUGS (8)
  1. TACROLIMUS [Suspect]
     Indication: RHEUMATOID ARTHRITIS
     Dosage: 3 MG, ORAL
     Route: 048
     Dates: start: 20070914, end: 20071029
  2. METOLATE (METHOTREXATE SODIUM) TABLET [Concomitant]
  3. BONALON (ALENDRONIC ACID) TABLET [Concomitant]
  4. FOLIAMIN (FOLIC ACID) TABLET [Concomitant]
  5. MEDROL [Concomitant]
  6. PROTECADIN (LAFUTIDINE) TABLET [Concomitant]
  7. VOLTAREN CAPSULE [Concomitant]
  8. MOHRUS (KETOPROFEN) TAPE [Concomitant]

REACTIONS (2)
  - LENTIGO [None]
  - MALIGNANT MELANOMA [None]
